FAERS Safety Report 9617268 (Version 2)
Quarter: 2014Q1

REPORT INFORMATION
  Report Type: Spontaneous
  Country: US (occurrence: US)
  Receive Date: 20131011
  Receipt Date: 20140207
  Transmission Date: 20141002
  Serious: Yes (Hospitalization, Disabling, Other)
  Sender: FDA-Public Use
  Company Number: US-GLAXOSMITHKLINE-A1044735A

PATIENT
  Age: 39 Year
  Sex: Female
  Weight: 70.5 kg

DRUGS (6)
  1. BENLYSTA [Suspect]
     Indication: SYSTEMIC LUPUS ERYTHEMATOSUS
     Dosage: 10MGK SINGLE DOSE
     Route: 042
     Dates: start: 201308
  2. LEFLUNOMIDE [Suspect]
     Indication: SYSTEMIC LUPUS ERYTHEMATOSUS
     Dates: start: 2011, end: 201309
  3. LISINOPRIL [Suspect]
     Indication: PRODUCT USED FOR UNKNOWN INDICATION
  4. PREDNISONE [Concomitant]
     Indication: SYSTEMIC LUPUS ERYTHEMATOSUS
     Dates: start: 2011
  5. IVIG [Concomitant]
     Indication: SYSTEMIC LUPUS ERYTHEMATOSUS
     Dates: start: 2011
  6. HYDROXYCHLOROQUINE [Concomitant]

REACTIONS (17)
  - Pulmonary arterial hypertension [Recovering/Resolving]
  - Cardiac failure [Recovering/Resolving]
  - Beta haemolytic streptococcal infection [Recovering/Resolving]
  - Opportunistic infection [Recovering/Resolving]
  - Sepsis [Recovering/Resolving]
  - Angle closure glaucoma [Recovering/Resolving]
  - Blindness unilateral [Recovering/Resolving]
  - Eye infection [Recovering/Resolving]
  - Synovitis [Recovering/Resolving]
  - Pyrexia [Recovering/Resolving]
  - Arthralgia [Recovering/Resolving]
  - Dyspnoea [Recovering/Resolving]
  - Oedema peripheral [Recovering/Resolving]
  - Rales [Recovering/Resolving]
  - Heart sounds abnormal [Recovering/Resolving]
  - Cardiomyopathy [Recovering/Resolving]
  - Dizziness [Recovering/Resolving]
